FAERS Safety Report 8604348-6 (Version None)
Quarter: 2012Q3

REPORT INFORMATION
  Report Type: 
  Country: None (occurrence: None)
  Receive Date: 20120808
  Receipt Date: 20120808
  Transmission Date: 20120928
  Serious: Yes (Death, Life-Threatening)
  Sender: FDA-Public Use
  Company Number: None

PATIENT
  Age: 40 Year
  Sex: Female

DRUGS (11)
  1. RAPAMUNE(RAPAMUNE) [Concomitant]
  2. MYFORTIC(MYFORTIC) [Concomitant]
  3. LEVOFLOXACINA(LEVOFLOXACINA) [Concomitant]
  4. FLUDARABINE PHOSPHATE [Concomitant]
  5. FOSCAVIR [Suspect]
     Indication: CYTOMEGALOVIRUS INFECTION
     Dosage: 4.00-G- INTRAVENOUS (NOT OTHERWISE SPECIFIED)
     Route: 042
     Dates: start: 20120528, end: 20120605
  6. VFEND [Concomitant]
  7. TREOSULFAN(TREOSULFAN) [Concomitant]
  8. MABTHERA [Concomitant]
  9. BACTRIM [Concomitant]
  10. ATG-FRESENIUS(ATG-FRESENIUS) [Concomitant]
  11. URBASON(URBASON) [Concomitant]

REACTIONS (4)
  - MULTI-ORGAN FAILURE [None]
  - RENAL FAILURE ACUTE [None]
  - CONTINUOUS HAEMODIAFILTRATION [None]
  - SEPTIC SHOCK [None]
